FAERS Safety Report 18219172 (Version 7)
Quarter: 2020Q4

REPORT INFORMATION
  Report Type: Spontaneous
  Country: US (occurrence: US)
  Receive Date: 20200901
  Receipt Date: 20201026
  Transmission Date: 20210113
  Serious: Yes (Hospitalization, Other)
  Sender: FDA-Public Use
  Company Number: US-PFIZER INC-2020337530

PATIENT
  Age: 78 Year
  Sex: Female
  Weight: 68.04 kg

DRUGS (10)
  1. IBRANCE [Suspect]
     Active Substance: PALBOCICLIB
     Dosage: UNK
  2. IBRANCE [Suspect]
     Active Substance: PALBOCICLIB
     Dosage: 125 MG, CYCLIC (1 CAPSULE DAILY FOR 21 DAYS THEN OFF 7 DAYS)
     Route: 048
     Dates: start: 20200612
  3. DENOSUMAB [Concomitant]
     Active Substance: DENOSUMAB
     Dosage: 120 MG, MONTHLY
     Dates: start: 20201012
  4. FEMARA [Concomitant]
     Active Substance: LETROZOLE
     Indication: HORMONE RECEPTOR POSITIVE BREAST CANCER
     Dosage: 2.5 MG, DAILY
     Dates: start: 20190723
  5. IBRANCE [Suspect]
     Active Substance: PALBOCICLIB
     Dosage: 125 MG, CYCLIC (1 CAPSULE DAILY FOR 21 DAYS THEN OFF 7 DAYS)
     Route: 048
     Dates: start: 201907, end: 20200527
  6. XGEVA [Concomitant]
     Active Substance: DENOSUMAB
     Indication: PROPHYLAXIS
     Dosage: UNK, MONTHLY (SHOT ADMINISTERED ONE TIME A MONTH)
     Dates: start: 201906
  7. LETROZOLE. [Concomitant]
     Active Substance: LETROZOLE
     Dosage: 2.5 MG, DAILY
     Route: 048
     Dates: start: 201906
  8. LETROZOLE. [Concomitant]
     Active Substance: LETROZOLE
     Dosage: UNK
  9. DENOSUMAB [Concomitant]
     Active Substance: DENOSUMAB
     Indication: BREAST CANCER FEMALE
     Dosage: 120 MG, MONTHLY
     Dates: start: 20190723
  10. IBRANCE [Suspect]
     Active Substance: PALBOCICLIB
     Indication: BREAST CANCER STAGE IV
     Dosage: 125 MG, CYCLIC (1 CAPSULE DAILY FOR 21 DAYS THEN OFF 7 DAYS)
     Route: 048
     Dates: start: 201906

REACTIONS (21)
  - Dyspnoea [Unknown]
  - Neoplasm progression [Unknown]
  - Asthenia [Not Recovered/Not Resolved]
  - Back pain [Not Recovered/Not Resolved]
  - Red cell distribution width increased [Unknown]
  - Arthralgia [Not Recovered/Not Resolved]
  - Mean cell volume increased [Unknown]
  - Monocyte count increased [Unknown]
  - Red blood cell count decreased [Unknown]
  - Haematocrit decreased [Unknown]
  - Lymphocyte count increased [Unknown]
  - Decreased appetite [Not Recovered/Not Resolved]
  - Pain [Not Recovered/Not Resolved]
  - Fatigue [Unknown]
  - White blood cell count decreased [Not Recovered/Not Resolved]
  - Haemoglobin decreased [Unknown]
  - Mean cell haemoglobin increased [Unknown]
  - Neutrophil count decreased [Unknown]
  - Basophil count increased [Unknown]
  - Infection susceptibility increased [Not Recovered/Not Resolved]
  - Platelet count decreased [Unknown]

NARRATIVE: CASE EVENT DATE: 201906
